FAERS Safety Report 5228056-7 (Version None)
Quarter: 2007Q1

REPORT INFORMATION
  Report Type: 
  Country: None (occurrence: None)
  Receive Date: 20061201
  Receipt Date: 20060815
  Transmission Date: 20070707
  Serious: No
  Sender: FDA-Public Use
  Company Number: US200608002390

PATIENT
  Age: 50 Year
  Sex: Male

DRUGS (4)
  1. ALIMTA [Suspect]
     Indication: NON-SMALL CELL LUNG CANCER
     Dosage: 500 MG/M2, INTRAVENOUS
     Route: 042
     Dates: start: 20060810
  2. FOLIC ACID [Concomitant]
  3. VITAMIN B12 [Concomitant]
  4. DEXAMETHASONE TAB [Concomitant]

REACTIONS (2)
  - FLUSHING [None]
  - URTICARIA [None]
